FAERS Safety Report 17004149 (Version 1)
Quarter: 2019Q4

REPORT INFORMATION
  Report Type: Spontaneous
  Country: IT (occurrence: IT)
  Receive Date: 20191107
  Receipt Date: 20191107
  Transmission Date: 20200122
  Serious: Yes (Other)
  Sender: FDA-Public Use
  Company Number: IT-PFIZER INC-2019481139

PATIENT
  Age: 68 Year
  Sex: Male

DRUGS (6)
  1. TRIATEC (RAMIPRIL) [Suspect]
     Active Substance: RAMIPRIL
     Indication: HYPERTENSION
     Dosage: 10 MG, 1X/DAY (10 MG, QD)
     Route: 048
     Dates: start: 20190718
  2. LASIX [Suspect]
     Active Substance: FUROSEMIDE
     Indication: HYPERTENSION
     Dosage: UNK
     Route: 048
     Dates: start: 20190718
  3. CARDICOR [Concomitant]
     Active Substance: BISOPROLOL
     Dosage: UNK
  4. ESKIM [Concomitant]
     Active Substance: OMEGA-3 FATTY ACIDS
     Dosage: UNK
  5. DUOPLAVIN [Concomitant]
     Active Substance: ASPIRIN\CLOPIDOGREL
     Dosage: UNK
  6. LUCEN [ESOMEPRAZOLE MAGNESIUM] [Concomitant]
     Dosage: UNK

REACTIONS (3)
  - Chest pain [Recovering/Resolving]
  - Therapy non-responder [Unknown]
  - Blood pressure increased [Recovering/Resolving]

NARRATIVE: CASE EVENT DATE: 20191001
